FAERS Safety Report 4503938-X (Version None)
Quarter: 2004Q3

REPORT INFORMATION
  Report Type: 
  Country: None (occurrence: None)
  Receive Date: 20040928
  Receipt Date: 20040617
  Transmission Date: 20050211
  Serious: No
  Sender: FDA-Public Use
  Company Number: 04P-163-0264135-00

PATIENT
  Age: 54 Year
  Sex: Female
  Weight: 72.5755 kg

DRUGS (6)
  1. HUMIRA [Suspect]
     Indication: RHEUMATOID ARTHRITIS
     Dosage: 40 MG 1 IN 2 WK SUBCUTANEOUS
     Route: 058
     Dates: start: 20040514
  2. CELECOXIB [Concomitant]
  3. PENTASA [Concomitant]
  4. CLOZAPINE [Concomitant]
  5. SALBUTAMOL [Concomitant]
  6. ADVAIR [Concomitant]

REACTIONS (2)
  - ORAL PRURITUS [None]
  - THROAT IRRITATION [None]
